FAERS Safety Report 6341369-0 (Version None)
Quarter: 2009Q3

REPORT INFORMATION
  Report Type: 
  Country: None (occurrence: None)
  Receive Date: 20090901
  Receipt Date: 20090901
  Transmission Date: 20100115
  Serious: Yes (Other)
  Sender: FDA-Public Use
  Company Number: None

PATIENT
  Age: 19 Year
  Sex: Male

DRUGS (1)
  1. LAMOTRIGINE [Suspect]
     Dosage: TAKE ONE AND ONE-HALF TABLETS TWICE A DAY
     Dates: start: 20090716, end: 20090718

REACTIONS (2)
  - PRODUCT SUBSTITUTION ISSUE [None]
  - RASH GENERALISED [None]
